FAERS Safety Report 20330357 (Version 2)
Quarter: 2022Q1

REPORT INFORMATION
  Report Type: Spontaneous
  Country: JP (occurrence: JP)
  Receive Date: 20220113
  Receipt Date: 20220126
  Transmission Date: 20220424
  Serious: Yes (Other)
  Sender: FDA-Public Use
  Company Number: JP-NOVARTISPH-NVSJ2021JP021431

PATIENT
  Age: 84 Year
  Sex: Male

DRUGS (1)
  1. ENTRESTO [Suspect]
     Active Substance: SACUBITRIL\VALSARTAN
     Indication: Cardiac failure chronic
     Dosage: 200 MG
     Route: 048
     Dates: start: 20211206

REACTIONS (4)
  - Cardiac failure [Unknown]
  - Weight increased [Unknown]
  - Dyspnoea [Unknown]
  - Urine output decreased [Unknown]

NARRATIVE: CASE EVENT DATE: 20211227
